FAERS Safety Report 24345439 (Version 1)
Quarter: 2024Q3

REPORT INFORMATION
  Report Type: Spontaneous
  Country: US (occurrence: None)
  Receive Date: 20240920
  Receipt Date: 20240920
  Transmission Date: 20241017
  Serious: Yes (Death)
  Sender: Public
  Company Number: None

PATIENT
  Age: 59 Year
  Sex: Male
  Weight: 76.41 kg

DRUGS (7)
  1. LENALIDOMIDE [Suspect]
     Active Substance: LENALIDOMIDE
     Indication: Plasma cell myeloma
     Dosage: 1 TOT - TOTAL DAILY ORAL
     Route: 048
     Dates: start: 20220705, end: 20240917
  2. ACYCLOVIR 400 MG TAB [Concomitant]
  3. Calcium 600 mg calcium (1,500 mg) tablet [Concomitant]
  4. ferrous sulfate 325 mg (65 mg iron) table [Concomitant]
  5. Flomax 0.4 mg capsule [Concomitant]
  6. ibuprofen 200 mg tablet [Concomitant]
  7. Vitamin D3 125 mcg [Concomitant]

REACTIONS (1)
  - Death [None]

NARRATIVE: CASE EVENT DATE: 20240917
